FAERS Safety Report 7052965-X (Version None)
Quarter: 2010Q4

REPORT INFORMATION
  Report Type: 
  Country: None (occurrence: None)
  Receive Date: 20101020
  Receipt Date: 20101011
  Transmission Date: 20110411
  Serious: No
  Sender: FDA-Public Use
  Company Number: US-BIOGENIDEC-2010BI035811

PATIENT
  Sex: Male

DRUGS (1)
  1. TYSABRI [Suspect]
     Indication: MULTIPLE SCLEROSIS
     Route: 042
     Dates: start: 20080722

REACTIONS (5)
  - BLINDNESS TRANSIENT [None]
  - EYE MOVEMENT DISORDER [None]
  - HEADACHE [None]
  - PAIN [None]
  - PERONEAL NERVE PALSY [None]
